FAERS Safety Report 24575811 (Version 1)
Quarter: 2024Q4

REPORT INFORMATION
  Report Type: Spontaneous
  Country: US (occurrence: US)
  Receive Date: 20241104
  Receipt Date: 20241104
  Transmission Date: 20250115
  Serious: Yes (Other)
  Sender: BRISTOL-MYERS SQUIBB COMPANY
  Company Number: US-BRISTOL-MYERS SQUIBB COMPANY-2024-170815

PATIENT
  Age: 76 Year
  Sex: Female

DRUGS (1)
  1. POMALYST [Suspect]
     Active Substance: POMALIDOMIDE
     Indication: Breast cancer female
     Dosage: FREQUENCY: TAKE 1 WHOLE CAPSULE BY MOUTH AT SAME TIME DAILY FOR 21 DAYS 7 DAYS OFF. TAKE AT LEAST 2
     Route: 048

REACTIONS (1)
  - Malignant neoplasm progression [Unknown]
